FAERS Safety Report 9324374 (Version 1)
Quarter: 2013Q2

REPORT INFORMATION
  Report Type: Spontaneous
  Country: CA (occurrence: CA)
  Receive Date: 20130603
  Receipt Date: 20130603
  Transmission Date: 20140414
  Serious: Yes (Other)
  Sender: FDA-Public Use
  Company Number: CA-TEVA-409492USA

PATIENT
  Age: 24 Year
  Sex: Female
  Weight: 83 kg

DRUGS (1)
  1. CITALOPRAM [Suspect]
     Dosage: 40 MILLIGRAM DAILY;
     Route: 048

REACTIONS (3)
  - Condition aggravated [Recovered/Resolved]
  - Depression [Recovered/Resolved]
  - Product substitution issue [Recovered/Resolved]
